FAERS Safety Report 16253571 (Version 1)
Quarter: 2019Q2

REPORT INFORMATION
  Report Type: Spontaneous
  Country: US (occurrence: US)
  Receive Date: 20190430
  Receipt Date: 20190430
  Transmission Date: 20190711
  Serious: No
  Sender: FDA-Public Use
  Company Number: US-ASTRAZENECA-2019SE64628

PATIENT
  Age: 78 Year
  Sex: Female

DRUGS (2)
  1. PRILOSEC OTC [Suspect]
     Active Substance: OMEPRAZOLE MAGNESIUM
     Indication: DYSPEPSIA
     Route: 048
     Dates: start: 201904
  2. WARFARIN [Suspect]
     Active Substance: WARFARIN
     Dosage: UNKNOWN
     Route: 065

REACTIONS (3)
  - Expired product administered [Unknown]
  - Epistaxis [Not Recovered/Not Resolved]
  - Labelled drug-drug interaction medication error [Unknown]
